FAERS Safety Report 8405660-6 (Version None)
Quarter: 2012Q2

REPORT INFORMATION
  Report Type: 
  Country: None (occurrence: None)
  Receive Date: 20120604
  Receipt Date: 20120523
  Transmission Date: 20120825
  Serious: Yes (Other)
  Sender: FDA-Public Use
  Company Number: US-BIOGENIDEC-2012BI018340

PATIENT
  Sex: Female

DRUGS (2)
  1. AVONEX [Suspect]
     Indication: MULTIPLE SCLEROSIS
     Route: 030
     Dates: start: 20091117, end: 20111227
  2. AVONEX [Suspect]
     Route: 030
     Dates: start: 20120409, end: 20120409

REACTIONS (2)
  - ASTHENIA [None]
  - CONVULSION [None]
